FAERS Safety Report 7241416-8 (Version None)
Quarter: 2011Q1

REPORT INFORMATION
  Report Type: 
  Country: None (occurrence: None)
  Receive Date: 20110111
  Receipt Date: 20101227
  Transmission Date: 20110831
  Serious: Yes (Other)
  Sender: FDA-Public Use
  Company Number: THYM-1001155

PATIENT
  Age: 43 Year
  Sex: Female
  Weight: 61 kg

DRUGS (8)
  1. ACYCLOVIR [Concomitant]
  2. CEFEPIME HYDROCHLORIDE [Concomitant]
  3. ITRACONAZOLE [Concomitant]
  4. THYMOGLOBULIN [Suspect]
     Indication: APLASTIC ANAEMIA
     Dosage: 225 MG/KG, INTRAVENOUS
     Route: 042
     Dates: start: 20090811, end: 20090811
  5. METHYLPREDNISOLONE [Concomitant]
  6. CYCLOSPORINE [Concomitant]
  7. SULFAMETTHOXAZOLE AND TRIMETHOPRIM [Concomitant]
  8. LANSOPRAZOLE [Concomitant]

REACTIONS (3)
  - ALANINE AMINOTRANSFERASE INCREASED [None]
  - DISSEMINATED INTRAVASCULAR COAGULATION [None]
  - ASPARTATE AMINOTRANSFERASE INCREASED [None]
